FAERS Safety Report 8214624-7 (Version None)
Quarter: 2012Q1

REPORT INFORMATION
  Report Type: 
  Country: None (occurrence: None)
  Receive Date: 20120229
  Receipt Date: 20111215
  Transmission Date: 20120608
  Serious: Yes (Other)
  Sender: FDA-Public Use
  Company Number: US-JNJFOC-20111207617

PATIENT
  Sex: Female

DRUGS (2)
  1. IBUPROFEN [Suspect]
     Indication: ARTHRITIS
     Dosage: 800 MG, UNKNOWN
  2. DIOVAN (VALSARTAN) UNSPECIFIED [Concomitant]

REACTIONS (1)
  - GASTRIC HAEMORRHAGE [None]
